FAERS Safety Report 13288012 (Version 1)
Quarter: 2017Q1

REPORT INFORMATION
  Report Type: Report from Study
  Country: AR (occurrence: AR)
  Receive Date: 20170302
  Receipt Date: 20170302
  Transmission Date: 20170428
  Serious: Yes (Hospitalization)
  Sender: FDA-Public Use
  Company Number: PHHY2016AR142493

PATIENT
  Sex: Female

DRUGS (5)
  1. REFRIANEX (ACETAMINOPHEN\BROMHEXINE\CHLORPHENIRAMINE\PSEUDOEPHEDRINE) [Suspect]
     Active Substance: ACETAMINOPHEN\BROMHEXINE\CHLORPHENIRAMINE\PSEUDOEPHEDRINE
     Indication: NASOPHARYNGITIS
     Route: 065
     Dates: end: 20160912
  2. EXJADE [Suspect]
     Active Substance: DEFERASIROX
     Dosage: 500 MG, QD
     Route: 065
     Dates: start: 20160912
  3. EXJADE [Suspect]
     Active Substance: DEFERASIROX
     Indication: HEREDITARY HAEMOLYTIC ANAEMIA
     Dosage: 500 MG, QD
     Route: 065
     Dates: start: 20131101
  4. EXJADE [Suspect]
     Active Substance: DEFERASIROX
     Dosage: 250 MG, QD
     Route: 065
     Dates: end: 20160912
  5. EXJADE [Suspect]
     Active Substance: DEFERASIROX
     Dosage: 750 MG, QD (DAILY)
     Route: 065

REACTIONS (4)
  - Hepatic enzyme increased [Recovered/Resolved]
  - Liver disorder [Recovered/Resolved]
  - Enzyme level decreased [Not Recovered/Not Resolved]
  - Nasopharyngitis [Recovered/Resolved]
